FAERS Safety Report 11453827 (Version 2)
Quarter: 2015Q3

REPORT INFORMATION
  Report Type: Spontaneous
  Country: CH (occurrence: CH)
  Receive Date: 20150903
  Receipt Date: 20150917
  Transmission Date: 20151125
  Serious: Yes (Death, Hospitalization)
  Sender: FDA-Public Use
  Company Number: CH-BIOGENIDEC-2015BI118982

PATIENT
  Age: 57 Year
  Sex: Male

DRUGS (1)
  1. TYSABRI [Suspect]
     Active Substance: NATALIZUMAB
     Indication: RELAPSING-REMITTING MULTIPLE SCLEROSIS
     Route: 042
     Dates: start: 2008, end: 20150630

REACTIONS (8)
  - Acute respiratory distress syndrome [Fatal]
  - Pneumothorax spontaneous [Unknown]
  - Candida sepsis [Fatal]
  - Respiratory failure [Fatal]
  - Pneumonia pseudomonal [Fatal]
  - Agranulocytosis [Unknown]
  - Granulocytopenia [Unknown]
  - Leukopenia [Recovered/Resolved]

NARRATIVE: CASE EVENT DATE: 2015
